FAERS Safety Report 5271823-4 (Version None)
Quarter: 2007Q1

REPORT INFORMATION
  Report Type: 
  Country: None (occurrence: None)
  Receive Date: 20070316
  Receipt Date: 20070228
  Transmission Date: 20070707
  Serious: Yes (Death, Other)
  Sender: FDA-Public Use
  Company Number: 2006JP004923

PATIENT
  Age: 5 Year
  Sex: Male
  Weight: 25 kg

DRUGS (11)
  1. PROGRAF [Suspect]
     Indication: BONE MARROW TRANSPLANT
     Dosage: 0.5 MG, UID/QD, IV DRIP
     Route: 041
     Dates: start: 20050831, end: 20050909
  2. PROGRAF [Suspect]
     Indication: BONE MARROW TRANSPLANT
     Dosage: SEE IMAGE
     Route: 048
     Dates: start: 20050910, end: 20060110
  3. PROGRAF [Suspect]
     Indication: BONE MARROW TRANSPLANT
     Dosage: SEE IMAGE
     Route: 048
     Dates: start: 20060111, end: 20060420
  4. METHOTREXATE [Concomitant]
  5. CYLOPHOSPHAMIDE (CYCLOPHOSPHAMIDE) [Concomitant]
  6. BUSULFAN (BUSULFAN) [Concomitant]
  7. FLUDARA [Concomitant]
  8. MEDROL [Concomitant]
  9. FLUMARIN (FLOMOXEF SODIUM) [Concomitant]
  10. PODIF [Concomitant]
  11. PREDNISOLONE [Concomitant]

REACTIONS (5)
  - CATHETER RELATED INFECTION [None]
  - DRUG INEFFECTIVE [None]
  - GASTROINTESTINAL INFECTION [None]
  - LYMPHOPROLIFERATIVE DISORDER [None]
  - STAPHYLOCOCCAL SEPSIS [None]
